FAERS Safety Report 6913379-3 (Version None)
Quarter: 2010Q3

REPORT INFORMATION
  Report Type: 
  Country: None (occurrence: None)
  Receive Date: 20100809
  Receipt Date: 20100726
  Transmission Date: 20110219
  Serious: Yes (Hospitalization, Other)
  Sender: FDA-Public Use
  Company Number: US-ELI_LILLY_AND_COMPANY-US201005006842

PATIENT
  Sex: Female

DRUGS (26)
  1. FORTEO [Suspect]
     Indication: HYPOPARATHYROIDISM
     Dosage: 60 UG, DAILY (1/D)
     Dates: start: 20020101
  2. FORTEO [Suspect]
     Dosage: 20 UG, DAILY (1/D)
  3. FORTEO [Suspect]
     Dosage: 80 UG, DAILY (1/D)
  4. FORTEO [Suspect]
     Dosage: 20 UG, 2/D
  5. ZYPREXA [Concomitant]
     Dosage: 20 MG, EACH EVENING
  6. VENTOLIN HFA [Concomitant]
  7. COGENTIN [Concomitant]
  8. CALCIUM W/VITAMIN D NOS [Concomitant]
  9. VITAMIN B12 NOS [Concomitant]
  10. LASIX [Concomitant]
  11. GABAPENTIN [Concomitant]
  12. LACTULOSE [Concomitant]
  13. SYNTHROID [Concomitant]
     Dosage: 112 UG, UNKNOWN
  14. SYNTHROID [Concomitant]
     Dosage: 0.1 MG, DAILY (1/D)
  15. MULTI-VITAMIN [Concomitant]
  16. MIRALAX [Concomitant]
  17. ZANTAC [Concomitant]
  18. REQUIP [Concomitant]
  19. SENNA [Concomitant]
  20. ZOLOFT [Concomitant]
     Dosage: 100 MG, DAILY (1/D)
  21. FERROUS SULFATE [Concomitant]
     Dosage: 325 MG, 2/D
  22. BENZTROPINE MESYLATE [Concomitant]
     Dosage: 1 MG, 2/D
  23. RANITIDINE [Concomitant]
     Dosage: 150 MG, DAILY (1/D)
  24. OYSTER SHELL CACIUM WITH VITAMIN D [Concomitant]
     Dosage: UNK, 2/D
  25. SEROQUEL [Concomitant]
     Dosage: 300 MG, EACH EVENING
  26. NORTRIPTYLINE [Concomitant]
     Dosage: 75 MG, EACH EVENING

REACTIONS (6)
  - CONVULSION [None]
  - GENERAL PHYSICAL HEALTH DETERIORATION [None]
  - HYPOCALCAEMIA [None]
  - INTENTIONAL DRUG MISUSE [None]
  - OFF LABEL USE [None]
  - OVERDOSE [None]
